FAERS Safety Report 25104076 (Version 1)
Quarter: 2025Q1

REPORT INFORMATION
  Report Type: Report from Study
  Country: CA (occurrence: CA)
  Receive Date: 20250321
  Receipt Date: 20250321
  Transmission Date: 20250409
  Serious: Yes (Death)
  Sender: CHIESI
  Company Number: CA-CHIESI-2025CHF01819

PATIENT
  Age: 24 Year
  Sex: Male
  Weight: 52.1 kg

DRUGS (1)
  1. DEFERIPRONE [Suspect]
     Active Substance: DEFERIPRONE
     Indication: Sideroblastic anaemia
     Dosage: UNK, TID
     Route: 048
     Dates: start: 20180317

REACTIONS (1)
  - Death [Fatal]

NARRATIVE: CASE EVENT DATE: 20250312
